FAERS Safety Report 4787091-3 (Version None)
Quarter: 2005Q3

REPORT INFORMATION
  Report Type: 
  Country: None (occurrence: None)
  Receive Date: 20050930
  Receipt Date: 20050915
  Transmission Date: 20060218
  Serious: Yes (Hospitalization)
  Sender: FDA-Public Use
  Company Number: 2005P1000435

PATIENT
  Age: 70 Year
  Sex: Male
  Weight: 83 kg

DRUGS (8)
  1. RETEVASE [Suspect]
     Indication: ACUTE MYOCARDIAL INFARCTION
  2. ASPIRIN [Concomitant]
  3. CLOPIDOGREL [Concomitant]
  4. ATORVASTATIN [Concomitant]
  5. ATENOLOL [Concomitant]
  6. PERINDOPRIL [Concomitant]
  7. OMEPRAZOLE [Concomitant]
  8. GLYCERYL TRINITRATE [Concomitant]

REACTIONS (3)
  - CHEST PAIN [None]
  - DYSPNOEA [None]
  - TROPONIN I INCREASED [None]
